FAERS Safety Report 17961134 (Version 1)
Quarter: 2020Q2

REPORT INFORMATION
  Report Type: Spontaneous
  Country: US (occurrence: US)
  Receive Date: 20200629
  Receipt Date: 20200629
  Transmission Date: 20200714
  Serious: No
  Sender: FDA-Public Use
  Company Number: US-ROCHE-2346812

PATIENT
  Age: 81 Year
  Sex: Female

DRUGS (2)
  1. XELODA [Suspect]
     Active Substance: CAPECITABINE
     Dosage: 4 TABLETS IN THE EVENING; ONGOING
     Route: 048
     Dates: start: 20181001
  2. XELODA [Suspect]
     Active Substance: CAPECITABINE
     Indication: COLON CANCER
     Dosage: 3 TABLETS IN THE MORNING
     Route: 048
     Dates: start: 20181001

REACTIONS (3)
  - Fatigue [Not Recovered/Not Resolved]
  - Diarrhoea [Recovered/Resolved]
  - Pain [Not Recovered/Not Resolved]

NARRATIVE: CASE EVENT DATE: 20190627
